FAERS Safety Report 6879326-8 (Version None)
Quarter: 2010Q3

REPORT INFORMATION
  Report Type: 
  Country: None (occurrence: None)
  Receive Date: 20100728
  Receipt Date: 20100709
  Transmission Date: 20110219
  Serious: Yes (Other)
  Sender: FDA-Public Use
  Company Number: US-JNJFOC-20100400540

PATIENT
  Sex: Female
  Weight: 95.3 kg

DRUGS (5)
  1. TYLENOL (CAPLET) [Suspect]
     Route: 048
  2. TYLENOL (CAPLET) [Suspect]
     Indication: PAIN
     Route: 048
  3. UNKNOWN MEDICATION [Concomitant]
  4. ANTIHYPERTENSIVE [Concomitant]
  5. CHOLESTEROL MEDICATION [Concomitant]

REACTIONS (3)
  - HYPERSENSITIVITY [None]
  - PAIN [None]
  - PRODUCT QUALITY ISSUE [None]
